FAERS Safety Report 18078656 (Version 1)
Quarter: 2020Q3

REPORT INFORMATION
  Report Type: Spontaneous
  Country: US (occurrence: US)
  Receive Date: 20200727
  Receipt Date: 20200727
  Transmission Date: 20201103
  Serious: Yes (Hospitalization)
  Sender: FDA-Public Use
  Company Number: None

PATIENT
  Age: 79 Year
  Sex: Female

DRUGS (17)
  1. LEVETIRACETA [Concomitant]
     Active Substance: LEVETIRACETAM
  2. MOMETASONE [Concomitant]
     Active Substance: MOMETASONE
  3. LAXATIVE [Concomitant]
     Active Substance: UNSPECIFIED INGREDIENT
  4. METAMUCIL [Concomitant]
     Active Substance: PLANTAGO SEED
  5. MONTELUKAST [Concomitant]
     Active Substance: MONTELUKAST SODIUM
  6. SYNTHROID [Concomitant]
     Active Substance: LEVOTHYROXINE SODIUM
  7. ARICEPT [Concomitant]
     Active Substance: DONEPEZIL HYDROCHLORIDE
  8. GABAPENTIN. [Concomitant]
     Active Substance: GABAPENTIN
  9. IPRATROPIUM/SOL ALBUTEROL [Concomitant]
  10. OMEGA?3 ACIDS [Concomitant]
     Active Substance: OMEGA-3 FATTY ACIDS
  11. STOOL SOFTENER (DOCUSATE) [Concomitant]
     Active Substance: DOCUSATE
  12. TADALAFIL 20MG [Suspect]
     Active Substance: TADALAFIL
     Indication: PULMONARY ARTERIAL HYPERTENSION
     Route: 048
     Dates: start: 20190628
  13. ALBUTEROL. [Concomitant]
     Active Substance: ALBUTEROL
  14. OPSUMIT [Concomitant]
     Active Substance: MACITENTAN
  15. ESCITALOPRAM [Concomitant]
     Active Substance: ESCITALOPRAM OXALATE
  16. TOLTERODINE [Concomitant]
     Active Substance: TOLTERODINE
  17. LOSARTAN. [Concomitant]
     Active Substance: LOSARTAN

REACTIONS (2)
  - Cardiac failure congestive [None]
  - Chronic obstructive pulmonary disease [None]

NARRATIVE: CASE EVENT DATE: 20200718
